FAERS Safety Report 11598756 (Version 2)
Quarter: 2015Q4

REPORT INFORMATION
  Report Type: Spontaneous
  Country: US (occurrence: US)
  Receive Date: 20151006
  Receipt Date: 20151203
  Transmission Date: 20160304
  Serious: Yes (Other)
  Sender: FDA-Public Use
  Company Number: US-GLAXOSMITHKLINE-US2015GSK139593

PATIENT
  Age: 72 Year
  Sex: Female

DRUGS (2)
  1. FLOVENT [Suspect]
     Active Substance: FLUTICASONE PROPIONATE
     Indication: ASTHMA
     Dosage: UNK
     Dates: start: 2012
  2. VENTOLIN HFA [Suspect]
     Active Substance: ALBUTEROL SULFATE
     Indication: ASTHMA
     Dosage: UNK
     Dates: start: 2012

REACTIONS (7)
  - Cataract operation [Unknown]
  - Eye patch application [Unknown]
  - Accident [Unknown]
  - Orthopaedic procedure [Unknown]
  - Femur fracture [Unknown]
  - Abasia [Unknown]
  - Eye discharge [Unknown]

NARRATIVE: CASE EVENT DATE: 20150212
